FAERS Safety Report 25985000 (Version 1)
Quarter: 2025Q4

REPORT INFORMATION
  Report Type: Report from Study
  Country: US (occurrence: US)
  Receive Date: 20251031
  Receipt Date: 20251031
  Transmission Date: 20260118
  Serious: Yes (Other)
  Sender: ABBVIE
  Company Number: US-ABBVIE-6521928

PATIENT
  Age: 42 Year
  Sex: Male

DRUGS (1)
  1. RINVOQ [Suspect]
     Active Substance: UPADACITINIB
     Indication: Crohn^s disease
     Route: 048
     Dates: start: 20251018

REACTIONS (5)
  - Artificial crown procedure [Recovering/Resolving]
  - Pain [Unknown]
  - Nephrolithiasis [Recovering/Resolving]
  - Abdominal pain upper [Recovering/Resolving]
  - Blood urine present [Unknown]

NARRATIVE: CASE EVENT DATE: 20251001
